FAERS Safety Report 6237760-3 (Version None)
Quarter: 2009Q2

REPORT INFORMATION
  Report Type: 
  Country: None (occurrence: None)
  Receive Date: 20090618
  Receipt Date: 20090609
  Transmission Date: 20091009
  Serious: Yes (Death, Other)
  Sender: FDA-Public Use
  Company Number: CLOF-1000538

PATIENT
  Age: 17 Year
  Sex: Female

DRUGS (5)
  1. CLOLAR [Suspect]
     Indication: ACUTE BIPHENOTYPIC LEUKAEMIA
     Dosage: QDX3, INTRAVENOUS
     Route: 042
     Dates: start: 20090424, end: 20090426
  2. CYCLOPHOSPHAMIDE [Concomitant]
  3. MESNA [Concomitant]
  4. CYTARABINE [Concomitant]
  5. ETOPOSIDE [Concomitant]

REACTIONS (6)
  - BLOOD CREATININE INCREASED [None]
  - CAPILLARY LEAK SYNDROME [None]
  - FLUID OVERLOAD [None]
  - HYPOVOLAEMIA [None]
  - RESPIRATORY DISTRESS [None]
  - SEPSIS [None]
